FAERS Safety Report 6267900-1 (Version None)
Quarter: 2009Q3

REPORT INFORMATION
  Report Type: 
  Country: None (occurrence: None)
  Receive Date: 20090714
  Receipt Date: 20090706
  Transmission Date: 20100115
  Serious: Yes (Hospitalization, Other)
  Sender: FDA-Public Use
  Company Number: US-ABBOTT-09P-163-0583479-00

PATIENT
  Age: 20 Year
  Sex: Female

DRUGS (2)
  1. NORVIR [Suspect]
     Indication: HIV INFECTION
     Route: 048
     Dates: start: 20090501
  2. NORVIR [Suspect]
     Route: 048
     Dates: start: 20090629

REACTIONS (4)
  - DYSPNOEA [None]
  - INAPPROPRIATE SCHEDULE OF DRUG ADMINISTRATION [None]
  - NAUSEA [None]
  - PNEUMOCYSTIS JIROVECI PNEUMONIA [None]
